FAERS Safety Report 8054719-4 (Version None)
Quarter: 2012Q1

REPORT INFORMATION
  Report Type: 
  Country: None (occurrence: None)
  Receive Date: 20120119
  Receipt Date: 20120116
  Transmission Date: 20120608
  Serious: No
  Sender: FDA-Public Use
  Company Number: US-PFIZER INC-2012012222

PATIENT
  Sex: Male
  Weight: 86.168 kg

DRUGS (2)
  1. OXYCODONE [Concomitant]
     Dosage: UNK
  2. ADVIL CONGESTION RELIEF [Suspect]
     Indication: NASAL CONGESTION
     Dosage: 10 MG, EVERY 4-5 HOURS
     Route: 048
     Dates: start: 20120115, end: 20120116

REACTIONS (1)
  - DRUG INEFFECTIVE [None]
